FAERS Safety Report 5316747-9 (Version None)
Quarter: 2007Q2

REPORT INFORMATION
  Report Type: 
  Country: None (occurrence: None)
  Receive Date: 20070504
  Receipt Date: 20070501
  Transmission Date: 20071010
  Serious: Yes (Other)
  Sender: FDA-Public Use
  Company Number: 2005UW02934

PATIENT
  Age: 66 Year
  Sex: Male
  Weight: 68 kg

DRUGS (2)
  1. IRESSA [Suspect]
     Indication: NON-SMALL CELL LUNG CANCER
     Route: 048
     Dates: end: 20050218
  2. BIAXIN SR [Suspect]
     Indication: UPPER RESPIRATORY TRACT INFECTION
     Dates: end: 20050219

REACTIONS (4)
  - HEPATIC ENZYME INCREASED [None]
  - RASH [None]
  - RECURRENT CANCER [None]
  - UPPER RESPIRATORY TRACT INFECTION [None]
